FAERS Safety Report 7832144-6 (Version None)
Quarter: 2011Q4

REPORT INFORMATION
  Report Type: 
  Country: None (occurrence: None)
  Receive Date: 20111022
  Receipt Date: 20111010
  Transmission Date: 20120403
  Serious: Yes (Other)
  Sender: FDA-Public Use
  Company Number: US-BAYER-2011-065182

PATIENT
  Age: 26 Year
  Sex: Female
  Weight: 96.145 kg

DRUGS (6)
  1. NAPROXEN [Concomitant]
     Dosage: UNK
     Dates: start: 20010101
  2. DROSPIRENONE AND ETHINYL ESTRADIOL [Suspect]
     Indication: CONTRACEPTION
     Dosage: UNK
     Dates: start: 20090105, end: 20090204
  3. YAZ [Suspect]
     Indication: CONTRACEPTION
     Dosage: UNK
     Dates: start: 20090609, end: 20090803
  4. THYROID TAB [Concomitant]
     Indication: HYPOTHYROIDISM
     Dosage: 30 MG, QD
     Route: 048
     Dates: start: 20081101, end: 20090901
  5. IBUPROFEN [Concomitant]
     Dosage: UNK
     Dates: start: 20010101
  6. MEDROXYPROGESTERONE [Concomitant]
     Dosage: UNK
     Dates: start: 20090604

REACTIONS (3)
  - DEEP VEIN THROMBOSIS [None]
  - PULMONARY EMBOLISM [None]
  - PAIN IN EXTREMITY [None]
